FAERS Safety Report 18809546 (Version 1)
Quarter: 2021Q1

REPORT INFORMATION
  Report Type: Spontaneous
  Country: US (occurrence: US)
  Receive Date: 20210129
  Receipt Date: 20210129
  Transmission Date: 20210419
  Serious: No
  Sender: FDA-Public Use
  Company Number: US-PFIZER INC-2021072728

PATIENT
  Age: 71 Year
  Sex: Female
  Weight: 59.87 kg

DRUGS (1)
  1. ESTRING [Suspect]
     Active Substance: ESTRADIOL
     Indication: VULVOVAGINAL DRYNESS
     Dosage: 2 MG (PLACE IN THE VAGINA EVERY 90 DAYS)
     Route: 067

REACTIONS (1)
  - Vulvovaginal pain [Recovered/Resolved]
